FAERS Safety Report 5414892-0 (Version None)
Quarter: 2007Q3

REPORT INFORMATION
  Report Type: 
  Country: None (occurrence: None)
  Receive Date: 20070815
  Receipt Date: 20070803
  Transmission Date: 20080115
  Serious: Yes (Disabling)
  Sender: FDA-Public Use
  Company Number: HQWYE415007AUG07

PATIENT
  Sex: Male
  Weight: 90.8 kg

DRUGS (3)
  1. EFFEXOR XR [Suspect]
     Indication: HYPERHIDROSIS
     Route: 048
     Dates: start: 20070201, end: 20070501
  2. EFFEXOR XR [Suspect]
     Route: 048
     Dates: start: 20070501, end: 20070601
  3. EFFEXOR XR [Suspect]
     Route: 048
     Dates: start: 20070601, end: 20070730

REACTIONS (5)
  - DIZZINESS [None]
  - DRUG WITHDRAWAL SYNDROME [None]
  - HYPOAESTHESIA ORAL [None]
  - PARAESTHESIA [None]
  - PRESYNCOPE [None]
